FAERS Safety Report 7366376-0 (Version None)
Quarter: 2011Q1

REPORT INFORMATION
  Report Type: 
  Country: None (occurrence: None)
  Receive Date: 20110322
  Receipt Date: 20110316
  Transmission Date: 20110831
  Serious: Yes (Other)
  Sender: FDA-Public Use
  Company Number: US-B.I. PHARMACEUTICALS,INC./RIDGEFIELD-2011-BP-08220BP

PATIENT
  Age: 55 Year
  Sex: Male

DRUGS (11)
  1. HYDROCONE [Concomitant]
     Indication: PAIN
     Dosage: 30 MG
     Route: 048
     Dates: start: 19990101
  2. XOPENEX [Concomitant]
     Indication: CHRONIC OBSTRUCTIVE PULMONARY DISEASE
  3. METOPROLOL [Concomitant]
     Indication: BLOOD PRESSURE
     Dosage: 30 MG
     Route: 048
     Dates: start: 19990101
  4. VYTORIN [Concomitant]
     Indication: BLOOD CHOLESTEROL INCREASED
     Dosage: 30 MG
     Route: 048
     Dates: start: 19990101
  5. SPIRIVA [Suspect]
     Indication: CHRONIC OBSTRUCTIVE PULMONARY DISEASE
     Dosage: 18 MCG
     Route: 055
     Dates: start: 20110101
  6. LORAZEPAM [Concomitant]
     Indication: BACK PAIN
     Dosage: 30 MG
     Route: 048
  7. FLOVENT [Concomitant]
     Indication: CHRONIC OBSTRUCTIVE PULMONARY DISEASE
  8. NEURONTIN [Concomitant]
     Indication: CONVULSION
     Dosage: 3600 MG
     Route: 048
     Dates: start: 19990101
  9. COUMADIN [Concomitant]
     Indication: CEREBROVASCULAR ACCIDENT
     Route: 048
     Dates: start: 19930101
  10. KADIAN [Concomitant]
     Indication: PAIN
     Dosage: 30 MG
     Route: 048
     Dates: start: 19990101
  11. FLEXERIL [Concomitant]
     Indication: BACK PAIN
     Dosage: 30 MG
     Route: 048

REACTIONS (2)
  - INCORRECT ROUTE OF DRUG ADMINISTRATION [None]
  - CONVULSION [None]
